FAERS Safety Report 6649106-7 (Version None)
Quarter: 2010Q1

REPORT INFORMATION
  Report Type: 
  Country: None (occurrence: None)
  Receive Date: 20100322
  Receipt Date: 20100315
  Transmission Date: 20100710
  Serious: Yes (Death)
  Sender: FDA-Public Use
  Company Number: 2010AC000204

PATIENT
  Age: 55 Year
  Sex: Female

DRUGS (7)
  1. DIGOXIN [Suspect]
     Dosage: ; PO
     Route: 048
     Dates: start: 20051108, end: 20061005
  2. DIGOXIN [Suspect]
     Indication: MYOCARDIAL INFARCTION
     Dosage: 25 MG; PO
     Route: 048
     Dates: start: 20051201, end: 20061001
  3. SYNTHROID [Concomitant]
  4. LOTREL [Concomitant]
  5. LEXAPRO [Concomitant]
  6. SEROQUEL [Concomitant]
  7. LITHIUM [Concomitant]

REACTIONS (31)
  - ANXIETY [None]
  - ARRHYTHMIA [None]
  - ASTHENIA [None]
  - CACHEXIA [None]
  - CARDIAC FAILURE CONGESTIVE [None]
  - CHEST DISCOMFORT [None]
  - CHOLECYSTITIS [None]
  - COUGH [None]
  - DECREASED APPETITE [None]
  - DIARRHOEA [None]
  - DYSPNOEA [None]
  - ECONOMIC PROBLEM [None]
  - ELECTROCARDIOGRAM ABNORMAL [None]
  - FATIGUE [None]
  - FLAT AFFECT [None]
  - HEART RATE INCREASED [None]
  - HEART RATE IRREGULAR [None]
  - HEPATOBILIARY SCAN ABNORMAL [None]
  - HYPERTENSION [None]
  - HYPOTENSION [None]
  - MULTIPLE INJURIES [None]
  - NAUSEA [None]
  - OEDEMA PERIPHERAL [None]
  - PAIN [None]
  - PARTNER STRESS [None]
  - SURGERY [None]
  - SYNCOPE [None]
  - THERAPEUTIC AGENT TOXICITY [None]
  - VISUAL IMPAIRMENT [None]
  - VOMITING [None]
  - WEIGHT DECREASED [None]
